FAERS Safety Report 16992812 (Version 3)
Quarter: 2020Q1

REPORT INFORMATION
  Report Type: Spontaneous
  Country: US (occurrence: US)
  Receive Date: 20191105
  Receipt Date: 20200303
  Transmission Date: 20200409
  Serious: Yes (Other)
  Sender: FDA-Public Use
  Company Number: US-009507513-1911USA000853

PATIENT
  Age: 73 Year
  Sex: Male

DRUGS (10)
  1. SERTRALINE HYDROCHLORIDE. [Concomitant]
     Active Substance: SERTRALINE HYDROCHLORIDE
  2. GLIMEPIRIDE. [Concomitant]
     Active Substance: GLIMEPIRIDE
  3. JANUVIA [Suspect]
     Active Substance: SITAGLIPTIN PHOSPHATE
     Indication: TYPE 2 DIABETES MELLITUS
     Dosage: ONE 50 MILLIGRAM TABLET/DAILY
     Route: 048
     Dates: start: 20190802, end: 20190916
  4. TRAZODONE HYDROCHLORIDE. [Concomitant]
     Active Substance: TRAZODONE HYDROCHLORIDE
  5. METFORMIN [Concomitant]
     Active Substance: METFORMIN HYDROCHLORIDE
  6. METOPROLOL. [Concomitant]
     Active Substance: METOPROLOL
  7. PRINIVIL [Concomitant]
     Active Substance: LISINOPRIL
  8. PROSCAR [Concomitant]
     Active Substance: FINASTERIDE
  9. PANTOPRAZOLE [Concomitant]
     Active Substance: PANTOPRAZOLE
  10. WARFARIN [Concomitant]
     Active Substance: WARFARIN

REACTIONS (2)
  - Hallucination [Recovered/Resolved]
  - Mania [Recovered/Resolved]

NARRATIVE: CASE EVENT DATE: 20190902
